FAERS Safety Report 25208377 (Version 1)
Quarter: 2025Q2

REPORT INFORMATION
  Report Type: Spontaneous
  Country: SI (occurrence: None)
  Receive Date: 20250417
  Receipt Date: 20250417
  Transmission Date: 20250716
  Serious: Yes (Other)
  Sender: INCYTE
  Company Number: SI-INCYTE CORPORATION-2025IN004053

PATIENT
  Age: 77 Year

DRUGS (2)
  1. TAFASITAMAB [Suspect]
     Active Substance: TAFASITAMAB
     Indication: Diffuse large B-cell lymphoma
     Route: 065
  2. LENALIDOMIDE [Concomitant]
     Active Substance: LENALIDOMIDE
     Indication: Diffuse large B-cell lymphoma
     Route: 065

REACTIONS (2)
  - Diffuse large B-cell lymphoma [Recovering/Resolving]
  - Disease progression [Recovering/Resolving]
